FAERS Safety Report 6011166-4 (Version None)
Quarter: 2008Q4

REPORT INFORMATION
  Report Type: 
  Country: None (occurrence: None)
  Receive Date: 20081218
  Receipt Date: 20081210
  Transmission Date: 20090506
  Serious: Yes (Hospitalization)
  Sender: FDA-Public Use
  Company Number: JP-MERCK-0812USA03160

PATIENT
  Age: 72 Year
  Sex: Female

DRUGS (4)
  1. HYZAAR [Suspect]
     Route: 048
  2. GLYCYRRHIZIN [Suspect]
     Route: 065
  3. PREDNISOLONE [Concomitant]
     Route: 065
  4. [THERAPY UNSPECIFIED] [Concomitant]
     Route: 065

REACTIONS (1)
  - BLOOD POTASSIUM DECREASED [None]
